FAERS Safety Report 15408761 (Version 1)
Quarter: 2018Q3

REPORT INFORMATION
  Report Type: Spontaneous
  Country: DE (occurrence: DE)
  Receive Date: 20180920
  Receipt Date: 20180920
  Transmission Date: 20181010
  Serious: Yes (Other)
  Sender: FDA-Public Use
  Company Number: DE-ASTRAZENECA-2018SF17290

PATIENT
  Sex: Male
  Weight: 4.2 kg

DRUGS (3)
  1. SEROQUEL [Suspect]
     Active Substance: QUETIAPINE FUMARATE
     Indication: BIPOLAR DISORDER
     Dosage: 300 [MG/D ]/ DOSAGE REDUCTION FROM 300 TO 100 MG/D
     Route: 064
     Dates: start: 20170730, end: 20180426
  2. INFLUENZA VACCINE [Concomitant]
     Active Substance: INFLUENZA VIRUS VACCINE
     Indication: IMMUNISATION
     Route: 064
     Dates: start: 20171214, end: 20171214
  3. FOLIC ACID. [Concomitant]
     Active Substance: FOLIC ACID
     Indication: PROPHYLAXIS OF NEURAL TUBE DEFECT
     Dosage: 0.4 [MG/D] DAILY
     Route: 064

REACTIONS (1)
  - Large for dates baby [Recovered/Resolved]

NARRATIVE: CASE EVENT DATE: 20180426
